FAERS Safety Report 15715587 (Version 1)
Quarter: 2018Q4

REPORT INFORMATION
  Report Type: Spontaneous
  Country: CA (occurrence: CA)
  Receive Date: 20181212
  Receipt Date: 20181212
  Transmission Date: 20190205
  Serious: No
  Sender: FDA-Public Use
  Company Number: CA-PFIZER INC-3018497

PATIENT
  Sex: Female
  Weight: 2.52 kg

DRUGS (7)
  1. NICOTINE. [Suspect]
     Active Substance: NICOTINE
     Dosage: UNK
     Route: 064
  2. MORPHINE SULFATE. [Suspect]
     Active Substance: MORPHINE SULFATE
     Indication: DEPENDENCE
     Dosage: 18 MG, DAILY FREQ: 1 DAY; INTERVAL: 1 EVERY 1 DAY(S)
     Route: 064
     Dates: end: 2011
  3. SUBUTEX [Suspect]
     Active Substance: BUPRENORPHINE HYDROCHLORIDE
     Indication: DRUG DEPENDENCE
     Dosage: 8 MG, 1X/DAY
     Route: 064
  4. DICLECTIN [Suspect]
     Active Substance: DOXYLAMINE SUCCINATE\PYRIDOXINE HYDROCHLORIDE
     Indication: NAUSEA
  5. CODEINE [Suspect]
     Active Substance: CODEINE
     Indication: DEPENDENCE
     Dosage: 64 MG, 1X/DAY
     Route: 064
     Dates: end: 2011
  6. PANTOLOC [Suspect]
     Active Substance: PANTOPRAZOLE SODIUM
     Indication: GASTROOESOPHAGEAL REFLUX DISEASE
     Dosage: UNK
     Route: 064
  7. DICLECTIN [Suspect]
     Active Substance: DOXYLAMINE SUCCINATE\PYRIDOXINE HYDROCHLORIDE
     Indication: VOMITING
     Dosage: 10 MG, 4X/DAY FREQ: 4 DAY; INTERVAL: 1  6TH TO 13TH WEEK OF PREGNANCY
     Route: 064
     Dates: start: 2011, end: 2011

REACTIONS (1)
  - Maternal exposure during pregnancy [Unknown]
